FAERS Safety Report 5019030-4 (Version None)
Quarter: 2006Q2

REPORT INFORMATION
  Report Type: 
  Country: None (occurrence: None)
  Receive Date: 20060530
  Receipt Date: 20060516
  Transmission Date: 20061013
  Serious: No
  Sender: FDA-Public Use
  Company Number: 2006US-02333

PATIENT
  Age: 17 Year
  Sex: Male

DRUGS (1)
  1. ISOTRETINOIN [Suspect]
     Dosage: 40 MG, BID
     Dates: start: 20051121, end: 20060515

REACTIONS (4)
  - ACNE [None]
  - CONDITION AGGRAVATED [None]
  - EYE SWELLING [None]
  - FACIAL PAIN [None]
